FAERS Safety Report 9982329 (Version 1)
Quarter: 2014Q1

REPORT INFORMATION
  Report Type: Report from Study
  Country: US (occurrence: US)
  Receive Date: 20140307
  Receipt Date: 20140307
  Transmission Date: 20141002
  Serious: No
  Sender: FDA-Public Use
  Company Number: US-ABBVIE-13P-163-1177298-00

PATIENT
  Age: 53 Year
  Sex: Female

DRUGS (9)
  1. HUMIRA [Suspect]
     Indication: ANKYLOSING SPONDYLITIS
     Dates: start: 20131126
  2. VIT D [Concomitant]
     Indication: PRODUCT USED FOR UNKNOWN INDICATION
  3. LYRICA [Concomitant]
     Indication: PRODUCT USED FOR UNKNOWN INDICATION
     Dates: start: 2003
  4. MICARDIS [Concomitant]
     Indication: BLOOD PRESSURE
     Dates: start: 2001
  5. DURAGESIC [Concomitant]
     Indication: PRODUCT USED FOR UNKNOWN INDICATION
     Dosage: IN THE WINTER
  6. DURAGESIC [Concomitant]
     Dosage: IN THE SUMMER
  7. FLEXERIL [Concomitant]
     Indication: PRODUCT USED FOR UNKNOWN INDICATION
  8. PERCOCET [Concomitant]
     Indication: PAIN
     Dosage: 10/325 MG
  9. EPIPEN [Concomitant]
     Indication: PRODUCT USED FOR UNKNOWN INDICATION

REACTIONS (3)
  - Joint injury [Not Recovered/Not Resolved]
  - Injection site pain [Recovering/Resolving]
  - Injection site haemorrhage [Unknown]
